FAERS Safety Report 24049972 (Version 1)
Quarter: 2024Q3

REPORT INFORMATION
  Report Type: Spontaneous
  Country: IT (occurrence: IT)
  Receive Date: 20240704
  Receipt Date: 20240704
  Transmission Date: 20241016
  Serious: Yes (Death)
  Sender: STEMLINE THERAPEUTICS
  Company Number: IT-Stemline Therapeutics, Inc.-2024ST004008

PATIENT
  Age: 67 Year
  Sex: Male

DRUGS (1)
  1. ELZONRIS [Suspect]
     Active Substance: TAGRAXOFUSP-ERZS
     Indication: Product used for unknown indication
     Dosage: 12 MCGKG, DAY 1 TO DAY 4 OF A 5 DAY CYCLE
     Route: 042
     Dates: start: 20240617, end: 20240620

REACTIONS (1)
  - Death [Fatal]
